FAERS Safety Report 8045273-1 (Version None)
Quarter: 2012Q1

REPORT INFORMATION
  Report Type: 
  Country: None (occurrence: None)
  Receive Date: 20120113
  Receipt Date: 20120109
  Transmission Date: 20120608
  Serious: Yes (Hospitalization)
  Sender: FDA-Public Use
  Company Number: FR-PFIZER INC-2012005372

PATIENT
  Age: 40 Year
  Sex: Male

DRUGS (5)
  1. VIRAMUNE [Concomitant]
     Indication: HIV INFECTION
     Dosage: UNK
     Dates: start: 20111115
  2. ZIAGEN [Concomitant]
     Dosage: UNK
     Dates: start: 20111119
  3. PIPERACILLIN AND TAZOBACTAM [Suspect]
     Dosage: UNK
     Route: 042
     Dates: start: 20111101, end: 20111120
  4. EPIVIR [Concomitant]
     Indication: HIV INFECTION
     Dosage: UNK
     Dates: start: 20111115
  5. ZIAGEN [Concomitant]
     Indication: HIV INFECTION
     Dosage: UNK
     Dates: start: 20111115

REACTIONS (1)
  - TOXIC SKIN ERUPTION [None]
